FAERS Safety Report 10261303 (Version 2)
Quarter: 2014Q3

REPORT INFORMATION
  Report Type: Spontaneous
  Country: DE (occurrence: None)
  Receive Date: 20140623
  Receipt Date: 20140703
  Transmission Date: 20150326
  Serious: Yes (Hospitalization)
  Sender: FDA-Public Use
  Company Number: AUR-APL-2014-06155

PATIENT
  Age: 29 Year
  Sex: Female

DRUGS (3)
  1. OLANZAPINE. [Suspect]
     Active Substance: OLANZAPINE
     Indication: INSOMNIA
  2. FLUVOXAMINE [Suspect]
     Active Substance: FLUVOXAMINE
     Indication: ENZYME INHIBITION
  3. CLOZAPINE. [Suspect]
     Active Substance: CLOZAPINE
     Indication: SCHIZOPHRENIA
     Dosage: 250 MG, DAILY (50MG- 0-200 MG-0)

REACTIONS (6)
  - Constipation [None]
  - Obsessive-compulsive disorder [None]
  - Dry mouth [None]
  - Drug level above therapeutic [None]
  - Vision blurred [None]
  - Mental disorder [None]
